FAERS Safety Report 9723201 (Version 1)
Quarter: 2013Q4

REPORT INFORMATION
  Report Type: Spontaneous
  Country: FR (occurrence: FR)
  Receive Date: 20131202
  Receipt Date: 20131202
  Transmission Date: 20140711
  Serious: Yes (Other)
  Sender: FDA-Public Use
  Company Number: FR-ELI_LILLY_AND_COMPANY-FR201311008200

PATIENT
  Sex: Male

DRUGS (2)
  1. CIALIS [Suspect]
     Indication: PRODUCT USED FOR UNKNOWN INDICATION
     Dosage: 5 MG, QD
     Route: 048
  2. ZOMETA [Concomitant]
     Indication: PLASMA CELL MYELOMA
     Dosage: 1 DF, UNKNOWN
     Route: 065

REACTIONS (3)
  - Fall [Unknown]
  - Loss of consciousness [Unknown]
  - Vertigo [Unknown]
